FAERS Safety Report 23066404 (Version 1)
Quarter: 2023Q4

REPORT INFORMATION
  Report Type: Spontaneous
  Country: US (occurrence: US)
  Receive Date: 20231015
  Receipt Date: 20231015
  Transmission Date: 20240110
  Serious: Yes (Hospitalization, Other)
  Sender: FDA-Public Use
  Company Number: US-TORRENT-00012880

PATIENT
  Age: 47 Year
  Sex: Female

DRUGS (3)
  1. ARIPIPRAZOLE [Suspect]
     Active Substance: ARIPIPRAZOLE
     Indication: Psychotherapy
     Dosage: UNKNOWN
     Route: 065
  2. PAROXETINE [Suspect]
     Active Substance: PAROXETINE
     Indication: Psychotherapy
     Dosage: UNKNOWN
     Route: 065
  3. METHYLPHENIDATE [Suspect]
     Active Substance: METHYLPHENIDATE
     Indication: Product used for unknown indication
     Dosage: UNKNOWN
     Route: 065

REACTIONS (3)
  - Narcolepsy [Recovering/Resolving]
  - Electrocardiogram QT prolonged [Unknown]
  - Withdrawal syndrome [Unknown]
